FAERS Safety Report 10450885 (Version 1)
Quarter: 2014Q3

REPORT INFORMATION
  Report Type: Spontaneous
  Country: US (occurrence: US)
  Receive Date: 20140912
  Receipt Date: 20140912
  Transmission Date: 20150326
  Serious: No
  Sender: FDA-Public Use
  Company Number: US-BAUSCH-SYM-2013-11435

PATIENT
  Sex: Female

DRUGS (1)
  1. PENTOXIFYLLINE ER TABLETS [Suspect]
     Active Substance: PENTOXIFYLLINE
     Indication: COLLATERAL CIRCULATION
     Dosage: 1 TABLET, TWICE A DAY
     Route: 048

REACTIONS (3)
  - Fatigue [Unknown]
  - Asthenia [Unknown]
  - Somnolence [Unknown]
